FAERS Safety Report 12523234 (Version 1)
Quarter: 2016Q3

REPORT INFORMATION
  Report Type: Spontaneous
  Country: NL (occurrence: NL)
  Receive Date: 20160702
  Receipt Date: 20160702
  Transmission Date: 20161109
  Serious: Yes (Hospitalization)
  Sender: FDA-Public Use
  Company Number: NL-AMGEN-NLDSP2016083320

PATIENT
  Age: 62 Year
  Sex: Male
  Weight: 95 kg

DRUGS (12)
  1. MONO CEDOCARD [Concomitant]
     Dosage: 50 MG, QD
     Dates: start: 20150706
  2. PANTOPRAZOL [Concomitant]
     Active Substance: PANTOPRAZOLE SODIUM
     Dosage: 40 MG, QD
     Route: 048
     Dates: start: 20141114
  3. ACETYLSALICYLZUUR [Concomitant]
     Active Substance: ASPIRIN
     Dosage: 80 MG, QD
     Route: 048
     Dates: start: 20150706
  4. EZETROL [Concomitant]
     Active Substance: EZETIMIBE
     Dosage: 10 MG, QD
     Dates: start: 20160620
  5. MOVICOLON [Concomitant]
     Active Substance: POLYETHYLENE GLYCOL 3350\POTASSIUM CHLORIDE\SODIUM BICARBONATE\SODIUM CHLORIDE
     Dosage: 1 DF, QD
     Dates: start: 20160621
  6. FRAGMIN [Concomitant]
     Active Substance: DALTEPARIN SODIUM
     Dosage: 2 ML, QD
     Dates: start: 20160620
  7. TAMSULOSINE HCL [Concomitant]
     Active Substance: TAMSULOSIN
     Dosage: 4 MG, QD
     Route: 048
     Dates: start: 20160620
  8. PARACETAMOL [Concomitant]
     Active Substance: ACETAMINOPHEN
     Dosage: 1000 MG, 4 TIMES PER DAY
     Route: 048
     Dates: start: 20160620
  9. CARBAMAZEPINE. [Concomitant]
     Active Substance: CARBAMAZEPINE
     Dosage: 100 MG, QD
     Route: 048
     Dates: start: 20160621
  10. METOCLOPRAMIDE. [Concomitant]
     Active Substance: METOCLOPRAMIDE
     Dosage: 10 MG, 3 TIMES PER 1 AS NECESSARY
     Dates: start: 20160621
  11. MORFINE [Concomitant]
     Active Substance: MORPHINE
     Dosage: 10 MG/ML, 6 TIMES PER 1 AS NECESSARY
     Dates: start: 20160620
  12. REPATHA [Suspect]
     Active Substance: EVOLOCUMAB
     Indication: PRODUCT USED FOR UNKNOWN INDICATION
     Dosage: 140 MG/ML, Q2WK
     Route: 065
     Dates: start: 20160426, end: 20160623

REACTIONS (1)
  - Herpes zoster [Recovering/Resolving]

NARRATIVE: CASE EVENT DATE: 20160622
